FAERS Safety Report 7397030-7 (Version None)
Quarter: 2011Q2

REPORT INFORMATION
  Report Type: 
  Country: None (occurrence: None)
  Receive Date: 20110406
  Receipt Date: 20110303
  Transmission Date: 20111010
  Serious: Yes (Hospitalization)
  Sender: FDA-Public Use
  Company Number: US-BAYER-201016061NA

PATIENT
  Sex: Female
  Weight: 49.887 kg

DRUGS (9)
  1. YASMIN [Suspect]
     Indication: PRODUCT USED FOR UNKNOWN INDICATION
     Dosage: UNK
     Route: 048
     Dates: start: 20010101, end: 20030101
  2. INDERAL [Concomitant]
     Indication: MIGRAINE
  3. MULTI-VITAMIN [Concomitant]
     Dosage: DAILY
  4. TOPROL-XL [Concomitant]
  5. ALTACE [Concomitant]
     Indication: HYPERTENSION
     Dosage: 2.5 MG, UNK
     Dates: start: 20030101
  6. BLACK COHOSH [Concomitant]
     Indication: HOT FLUSH
     Dosage: DAILY
  7. PLAVIX [Concomitant]
     Dosage: 75 MG, DAILY
  8. IMITREX [Concomitant]
     Indication: MIGRAINE
     Dosage: AS NEEDED
  9. ASCORBIC ACID [Concomitant]

REACTIONS (3)
  - MYOCARDIAL INFARCTION [None]
  - HYPERTENSION [None]
  - ARRHYTHMIA SUPRAVENTRICULAR [None]
